FAERS Safety Report 6197179-0 (Version None)
Quarter: 2009Q2

REPORT INFORMATION
  Report Type: 
  Country: None (occurrence: None)
  Receive Date: 20090520
  Receipt Date: 20090506
  Transmission Date: 20091009
  Serious: Yes (Hospitalization)
  Sender: FDA-Public Use
  Company Number: US-GENENTECH-283316

PATIENT
  Sex: Male

DRUGS (7)
  1. XOLAIR [Suspect]
     Indication: ASTHMA
     Dosage: 225 MG, Q4W
     Route: 058
     Dates: start: 20040324
  2. XOLAIR [Suspect]
     Dosage: 300 MG, Q4W
     Route: 058
  3. FORADIL [Suspect]
     Indication: ASTHMA
     Dosage: 12 A?G, BID
  4. THEO-24 [Suspect]
     Indication: ASTHMA
     Dosage: 200 MG, QD
  5. SINGULAIR [Concomitant]
     Indication: ASTHMA
     Dosage: 10 MG, QD
     Route: 048
  6. RHINOCORT [Concomitant]
     Indication: ASTHMA
     Dosage: 1 PUFF, UNK
  7. ASMANEX TWISTHALER [Concomitant]
     Indication: ASTHMA
     Dosage: 220 A?G, UNK

REACTIONS (1)
  - ASTHMA [None]
